FAERS Safety Report 7496908-3 (Version None)
Quarter: 2011Q2

REPORT INFORMATION
  Report Type: 
  Country: None (occurrence: None)
  Receive Date: 20110523
  Receipt Date: 20110520
  Transmission Date: 20111010
  Serious: Yes (Other)
  Sender: FDA-Public Use
  Company Number: SE-PFIZER INC-2011075800

PATIENT
  Age: 44 Year
  Sex: Female
  Weight: 85 kg

DRUGS (2)
  1. VARENICLINE TARTRATE [Suspect]
     Dosage: UNK
     Dates: start: 20110309, end: 20110326
  2. VARENICLINE TARTRATE [Suspect]
     Dosage: 0.5 MG, 2X/DAY

REACTIONS (2)
  - RASH PUSTULAR [None]
  - RASH GENERALISED [None]
